FAERS Safety Report 5176934-X (Version None)
Quarter: 2006Q4

REPORT INFORMATION
  Report Type: 
  Country: None (occurrence: None)
  Receive Date: 20061212
  Receipt Date: 20061212
  Transmission Date: 20070319
  Serious: Yes (Hospitalization)
  Sender: FDA-Public Use
  Company Number: None

PATIENT
  Sex: Male
  Weight: 59.4212 kg

DRUGS (4)
  1. MIDAZOLAM HYDROCHLORIDE [Suspect]
     Indication: AORTIC BYPASS
     Dosage: IV
     Route: 042
     Dates: start: 20060901
  2. LIDOCAINE [Suspect]
     Indication: AORTIC BYPASS
     Dosage: IV
     Route: 042
     Dates: start: 20060901
  3. VECURONIUM BROMIDE [Suspect]
     Indication: AORTIC BYPASS
     Dosage: IV
     Route: 042
     Dates: start: 20060901
  4. CEFAZOLIN [Suspect]
     Indication: AORTIC BYPASS
     Dosage: 2 GRAMS IV
     Route: 042
     Dates: start: 20060901

REACTIONS (3)
  - ANAPHYLACTIC REACTION [None]
  - ELECTROCARDIOGRAM ST SEGMENT ABNORMAL [None]
  - NO THERAPEUTIC RESPONSE [None]
